FAERS Safety Report 5587658-9 (Version None)
Quarter: 2008Q1

REPORT INFORMATION
  Report Type: 
  Country: None (occurrence: None)
  Receive Date: 20080108
  Receipt Date: 20071221
  Transmission Date: 20080703
  Serious: Yes (Other)
  Sender: FDA-Public Use
  Company Number: 2007SP024182

PATIENT
  Age: 71 Year
  Sex: Female
  Weight: 80.7403 kg

DRUGS (10)
  1. CLARITIN [Suspect]
     Indication: COUGH
     Dosage: 1 DF; ONCE; PO
     Route: 048
     Dates: start: 20071126, end: 20071126
  2. CLARITIN [Suspect]
     Indication: NASAL CONGESTION
     Dosage: 1 DF; ONCE; PO
     Route: 048
     Dates: start: 20071126, end: 20071126
  3. CLARITIN [Suspect]
     Indication: NASOPHARYNGITIS
     Dosage: 1 DF; ONCE; PO
     Route: 048
     Dates: start: 20071126, end: 20071126
  4. CLARITIN [Suspect]
     Indication: RHINORRHOEA
     Dosage: 1 DF; ONCE; PO
     Route: 048
     Dates: start: 20071126, end: 20071126
  5. CLARITIN [Suspect]
     Indication: SINUS DISORDER
     Dosage: 1 DF; ONCE; PO
     Route: 048
     Dates: start: 20071126, end: 20071126
  6. METOPROLOL [Concomitant]
  7. NAPROXEN [Concomitant]
  8. DETROL LA [Concomitant]
  9. AVALIDE [Concomitant]
  10. GLUCOSAMINE [Concomitant]

REACTIONS (1)
  - HALLUCINATION, VISUAL [None]
